FAERS Safety Report 5918071-X (Version None)
Quarter: 2008Q4

REPORT INFORMATION
  Report Type: 
  Country: None (occurrence: None)
  Receive Date: 20081014
  Receipt Date: 20081008
  Transmission Date: 20090506
  Serious: Yes (Death, Hospitalization)
  Sender: FDA-Public Use
  Company Number: BE-ABBOTT-08P-013-0480573-00

PATIENT
  Sex: Male

DRUGS (2)
  1. LUCRIN TRIDEPOT 11.25 MG [Suspect]
     Indication: PROSTATE CANCER
     Dates: start: 20061220
  2. BICALUTAMIDE [Concomitant]
     Indication: DRUG USE FOR UNKNOWN INDICATION

REACTIONS (1)
  - PATHOLOGICAL FRACTURE [None]
